FAERS Safety Report 8812079 (Version 2)
Quarter: 2015Q2

REPORT INFORMATION
  Report Type: Report from Study
  Country: US (occurrence: US)
  Receive Date: 20120927
  Receipt Date: 20150626
  Transmission Date: 20150821
  Serious: Yes (Death)
  Sender: FDA-Public Use
  Company Number: US-ROCHE-1134148

PATIENT
  Sex: Female

DRUGS (38)
  1. CYTARABINE. [Concomitant]
     Active Substance: CYTARABINE
     Route: 042
  2. AZACITIDINE. [Concomitant]
     Active Substance: AZACITIDINE
     Route: 058
  3. DOXIL [Concomitant]
     Active Substance: DOXORUBICIN HYDROCHLORIDE
     Route: 042
  4. METHOTREXATE [Concomitant]
     Active Substance: METHOTREXATE
     Route: 042
  5. ALIMTA [Concomitant]
     Active Substance: PEMETREXED DISODIUM
     Route: 042
  6. BEVACIZUMAB [Suspect]
     Active Substance: BEVACIZUMAB
     Indication: PRODUCT USED FOR UNKNOWN INDICATION
     Route: 065
  7. CISPLATIN. [Concomitant]
     Active Substance: CISPLATIN
     Route: 042
  8. MANNITOL. [Concomitant]
     Active Substance: MANNITOL
     Route: 042
  9. EPIRUBICIN [Concomitant]
     Active Substance: EPIRUBICIN
     Route: 042
  10. OXALIPLATIN. [Concomitant]
     Active Substance: OXALIPLATIN
     Route: 042
  11. TAXOL [Concomitant]
     Active Substance: PACLITAXEL
     Route: 042
  12. ADRIAMYCIN [Concomitant]
     Active Substance: DOXORUBICIN HYDROCHLORIDE
     Route: 042
  13. ABRAXANE [Concomitant]
     Active Substance: PACLITAXEL
     Route: 042
  14. NAVELBINE [Concomitant]
     Active Substance: VINORELBINE TARTRATE
     Route: 042
  15. THIOTEPA. [Concomitant]
     Active Substance: THIOTEPA
     Route: 042
  16. VEPESID [Concomitant]
     Active Substance: ETOPOSIDE
     Route: 042
  17. CAMPTOSAR [Concomitant]
     Active Substance: IRINOTECAN HYDROCHLORIDE
     Route: 042
  18. FLUDARA [Concomitant]
     Active Substance: FLUDARABINE PHOSPHATE
     Route: 042
  19. TOPOTECAN [Concomitant]
     Active Substance: TOPOTECAN\TOPOTECAN HYDROCHLORIDE
     Route: 042
  20. HERCEPTIN [Suspect]
     Active Substance: TRASTUZUMAB
     Indication: BLADDER CANCER
     Route: 042
     Dates: start: 20080117
  21. 5-FLUOROURACIL [Concomitant]
     Active Substance: FLUOROURACIL
     Route: 042
  22. GEMZAR [Concomitant]
     Active Substance: GEMCITABINE HYDROCHLORIDE
     Route: 042
  23. LEUCOVORIN [Concomitant]
     Active Substance: LEUCOVORIN
     Route: 042
  24. MESNA. [Concomitant]
     Active Substance: MESNA
     Route: 042
  25. NOVANTRONE [Concomitant]
     Active Substance: MITOXANTRONE HYDROCHLORIDE
     Route: 042
  26. VELCADE [Concomitant]
     Active Substance: BORTEZOMIB
     Route: 042
  27. VINCRISTINE [Concomitant]
     Active Substance: VINCRISTINE
     Route: 042
  28. DACARBAZINE. [Concomitant]
     Active Substance: DACARBAZINE
     Route: 042
  29. HEPARIN [Concomitant]
     Active Substance: HEPARIN SODIUM
     Route: 042
  30. DOCETAXEL. [Concomitant]
     Active Substance: DOCETAXEL
     Route: 042
  31. ERBITUX [Concomitant]
     Active Substance: CETUXIMAB
     Route: 042
  32. ETHYOL [Concomitant]
     Active Substance: AMIFOSTINE
     Route: 042
  33. IFEX [Concomitant]
     Active Substance: IFOSFAMIDE
     Route: 042
  34. MITOMYCIN. [Concomitant]
     Active Substance: MITOMYCIN
     Route: 042
  35. CYTOXAN [Concomitant]
     Active Substance: CYCLOPHOSPHAMIDE
     Route: 042
  36. DECITABINE. [Concomitant]
     Active Substance: DECITABINE
     Route: 042
  37. RITUXIMAB [Concomitant]
     Active Substance: RITUXIMAB
     Route: 042
  38. VELBAN [Concomitant]
     Active Substance: VINBLASTINE SULFATE
     Route: 042

REACTIONS (3)
  - Death [Fatal]
  - Fatigue [Unknown]
  - Off label use [Unknown]
